FAERS Safety Report 10397686 (Version 3)
Quarter: 2015Q2

REPORT INFORMATION
  Report Type: Report from Study
  Country: JP (occurrence: JP)
  Receive Date: 20140821
  Receipt Date: 20150626
  Transmission Date: 20150821
  Serious: No
  Sender: FDA-Public Use
  Company Number: JP-UCBSA-2014009201

PATIENT
  Age: 39 Year
  Sex: Female
  Weight: 39 kg

DRUGS (13)
  1. LIMETHASONE [Concomitant]
     Active Substance: DEXAMETHASONE PALMITATE\GLYCERIN\LECITHIN\SOYBEAN OIL
     Dosage: 2.5 MG DAILY
     Route: 042
     Dates: start: 20130629, end: 20130629
  2. RHEUMATREX [Suspect]
     Active Substance: METHOTREXATE SODIUM
     Indication: RHEUMATOID ARTHRITIS
     Dosage: 12 MG, UNK
     Route: 048
  3. PREDONINE [Suspect]
     Active Substance: PREDNISOLONE\PREDNISOLONE ACETATE\PREDNISOLONE SODIUM SUCCINATE
     Indication: RHEUMATOID ARTHRITIS
     Dosage: 10 MG DAILY
     Route: 048
  4. LIMETHASONE [Concomitant]
     Active Substance: DEXAMETHASONE PALMITATE\GLYCERIN\LECITHIN\SOYBEAN OIL
     Dosage: 2.5 MG DAILY
     Dates: start: 20131130, end: 20131130
  5. MUCOSTA [Concomitant]
     Active Substance: REBAMIPIDE
     Dosage: UNK
     Route: 048
  6. DECADRON [Concomitant]
     Active Substance: DEXAMETHASONE
     Dosage: UNK
     Route: 014
  7. CERTOLIZUMAB PEGOL RA [Suspect]
     Active Substance: CERTOLIZUMAB PEGOL
     Dosage: 200 MG, EV 2 WEEKS(QOW)
     Route: 058
     Dates: start: 20130727, end: 20130727
  8. FOLIAMIN [Concomitant]
     Active Substance: FOLIC ACID
     Dosage: 5 MG DAILY
     Route: 048
  9. CERTOLIZUMAB PEGOL RA [Suspect]
     Active Substance: CERTOLIZUMAB PEGOL
     Dosage: 400 MG, EV 4 WEEKS
     Route: 058
     Dates: start: 20130810
  10. CERTOLIZUMAB PEGOL RA [Suspect]
     Active Substance: CERTOLIZUMAB PEGOL
     Indication: RHEUMATOID ARTHRITIS
     Dosage: 400 MG, EV 2 WEEKS(QOW)
     Route: 058
     Dates: start: 20130615, end: 20130713
  11. PROGRAF [Suspect]
     Active Substance: TACROLIMUS\TACROLIMUS ANHYDROUS
     Indication: RHEUMATOID ARTHRITIS
     Dosage: 2 MG DAILY
     Route: 048
     Dates: end: 20131004
  12. PROGRAF [Suspect]
     Active Substance: TACROLIMUS\TACROLIMUS ANHYDROUS
     Dosage: 3 MG
     Route: 048
     Dates: start: 20131005
  13. GASTER [Concomitant]
     Active Substance: FAMOTIDINE
     Dosage: 40 MG DAILY
     Route: 048
     Dates: start: 20131214

REACTIONS (1)
  - Cellulitis [Recovered/Resolved]

NARRATIVE: CASE EVENT DATE: 20130904
